FAERS Safety Report 14434643 (Version 1)
Quarter: 2018Q1

REPORT INFORMATION
  Report Type: Spontaneous
  Country: BR (occurrence: BR)
  Receive Date: 20180124
  Receipt Date: 20180124
  Transmission Date: 20180509
  Serious: Yes (Other)
  Sender: FDA-Public Use
  Company Number: BR-SA-2018SA013284

PATIENT
  Sex: Male

DRUGS (6)
  1. GEMCITABINE [Suspect]
     Active Substance: GEMCITABINE\GEMCITABINE HYDROCHLORIDE
     Indication: LIPOSARCOMA METASTATIC
     Route: 065
     Dates: start: 201607, end: 201607
  2. DOCETAXEL. [Suspect]
     Active Substance: DOCETAXEL
     Indication: LIPOSARCOMA METASTATIC
     Route: 051
     Dates: start: 201607, end: 201607
  3. DOCETAXEL. [Suspect]
     Active Substance: DOCETAXEL
     Indication: LIPOSARCOMA METASTATIC
     Route: 051
     Dates: start: 201710, end: 201710
  4. GEMCITABINE [Suspect]
     Active Substance: GEMCITABINE\GEMCITABINE HYDROCHLORIDE
     Indication: LIPOSARCOMA METASTATIC
     Route: 065
     Dates: start: 201710, end: 201710
  5. IFOSFAMIDE. [Concomitant]
     Active Substance: IFOSFAMIDE
  6. EPIRUBICIN [Concomitant]
     Active Substance: EPIRUBICIN

REACTIONS (10)
  - Blood creatinine abnormal [Unknown]
  - Blood bilirubin abnormal [Unknown]
  - Alanine aminotransferase abnormal [Unknown]
  - Retinoblastoma [Unknown]
  - Drug ineffective [Unknown]
  - Aspartate aminotransferase abnormal [Unknown]
  - Haemoglobin abnormal [Unknown]
  - Blood alkaline phosphatase abnormal [Unknown]
  - Neutrophil count abnormal [Unknown]
  - Platelet count abnormal [Unknown]
